FAERS Safety Report 5476122-3 (Version None)
Quarter: 2007Q4

REPORT INFORMATION
  Report Type: 
  Country: None (occurrence: None)
  Receive Date: 20071003
  Receipt Date: 20070924
  Transmission Date: 20080405
  Serious: Yes (Hospitalization)
  Sender: FDA-Public Use
  Company Number: US-ELI_LILLY_AND_COMPANY-US200709005430

PATIENT
  Age: 54 Year
  Sex: Female

DRUGS (14)
  1. CYMBALTA [Suspect]
     Indication: DEPRESSION
     Dosage: 20 MG, 2/D
  2. DIGOXIN [Concomitant]
  3. PROTONIX [Concomitant]
  4. METOPROLOL TARTRATE [Concomitant]
  5. LASIX [Concomitant]
  6. RISPERDAL [Concomitant]
  7. ATIVAN [Concomitant]
  8. OXYCONTIN [Concomitant]
  9. DARVON [Concomitant]
  10. ZOCOR [Concomitant]
  11. NEURONTIN [Concomitant]
  12. ENALAPRIL MALEATE [Concomitant]
  13. WELLBUTRIN [Concomitant]
  14. LEXAPRO [Concomitant]

REACTIONS (1)
  - ACUTE MYELOID LEUKAEMIA [None]
